FAERS Safety Report 9680546 (Version 1)
Quarter: 2013Q4

REPORT INFORMATION
  Report Type: Spontaneous
  Country: US (occurrence: US)
  Receive Date: 20131111
  Receipt Date: 20131111
  Transmission Date: 20140711
  Serious: Yes (Other)
  Sender: FDA-Public Use
  Company Number: US-PFIZER INC-2013318471

PATIENT
  Age: 61 Year
  Sex: Female
  Weight: 83.9 kg

DRUGS (10)
  1. LOPID [Suspect]
     Dosage: UNK
     Route: 048
     Dates: end: 2013
  2. JUXTAPID [Suspect]
     Indication: TYPE IIA HYPERLIPIDAEMIA
     Dosage: 10 MG, 1X/DAY
     Route: 048
     Dates: start: 201307, end: 201310
  3. NIASPAN [Suspect]
     Dosage: UNK
     Route: 048
     Dates: end: 2013
  4. QUESTRAN [Concomitant]
     Dosage: UNK
  5. ZETIA [Concomitant]
     Dosage: UNK
  6. TOPROL [Concomitant]
     Dosage: UNK
  7. ASA [Concomitant]
     Dosage: UNK
  8. EFFEXOR [Concomitant]
     Dosage: UNK
  9. WELLBUTRIN [Concomitant]
     Dosage: UNK
  10. FISH OIL [Concomitant]
     Dosage: UNK

REACTIONS (2)
  - Aspartate aminotransferase increased [Not Recovered/Not Resolved]
  - Alanine aminotransferase increased [Not Recovered/Not Resolved]
